FAERS Safety Report 6237789-5 (Version None)
Quarter: 2009Q2

REPORT INFORMATION
  Report Type: 
  Country: None (occurrence: None)
  Receive Date: 20090617
  Receipt Date: 20090609
  Transmission Date: 20091009
  Serious: Yes (Other)
  Sender: FDA-Public Use
  Company Number: 294149

PATIENT
  Age: 62 Year
  Sex: Female
  Weight: 44.3 kg

DRUGS (7)
  1. CARBOPLATIN [Suspect]
     Indication: OVARIAN CANCER RECURRENT
     Dosage: 292 MG, INTRAVENOUS
     Route: 042
     Dates: start: 20071220, end: 20090604
  2. DECADRON [Concomitant]
  3. RANITIDINE [Concomitant]
  4. ONDANSETRON [Concomitant]
  5. BENADRYL [Concomitant]
  6. PACLITAXEL [Concomitant]
  7. SOLU-CORTEF [Concomitant]

REACTIONS (6)
  - FEELING ABNORMAL [None]
  - FLUSHING [None]
  - OXYGEN SATURATION DECREASED [None]
  - PRURITUS [None]
  - RASH ERYTHEMATOUS [None]
  - URTICARIA [None]
